FAERS Safety Report 5000114-1 (Version None)
Quarter: 2006Q2

REPORT INFORMATION
  Report Type: 
  Country: None (occurrence: None)
  Receive Date: 20060510
  Receipt Date: 20060503
  Transmission Date: 20061013
  Serious: Yes (Other)
  Sender: FDA-Public Use
  Company Number: 2006059742

PATIENT
  Age: 70 Year
  Sex: Female
  Weight: 82 kg

DRUGS (7)
  1. DILANTIN KAPSEAL [Suspect]
     Indication: CONVULSION
     Dosage: (1 D),  ORAL
     Route: 048
     Dates: start: 19850101, end: 19890403
  2. DILANTIN KAPSEAL [Suspect]
     Indication: EPILEPSY
     Dosage: (1 D),  ORAL
     Route: 048
     Dates: start: 19850101, end: 19890403
  3. HALOPERIDOL [Suspect]
     Indication: ENCEPHALITIS
     Dosage: (1 D), ORAL
     Route: 048
     Dates: start: 19850101, end: 19890320
  4. BACTRIM DS [Suspect]
     Indication: URINARY TRACT DISORDER
     Dosage: (1 D), ORAL
     Route: 048
     Dates: start: 19890210, end: 19890220
  5. LEVOTHYROXINE SODIUM [Concomitant]
  6. VITAMIN PREPARATION COMPOUND (VITAMINS NOS) [Concomitant]
  7. DIAZEPAM [Concomitant]

REACTIONS (4)
  - ABDOMINAL PAIN [None]
  - JAUNDICE [None]
  - OEDEMA [None]
  - URINARY TRACT DISORDER [None]
